FAERS Safety Report 4627437-X (Version None)
Quarter: 2005Q2

REPORT INFORMATION
  Report Type: 
  Country: None (occurrence: None)
  Receive Date: 20050405
  Receipt Date: 20050330
  Transmission Date: 20051028
  Serious: Yes (Hospitalization)
  Sender: FDA-Public Use
  Company Number: NO-MERCK-0504NOR00003

PATIENT
  Age: 55 Year
  Sex: Female

DRUGS (3)
  1. VIOXX [Suspect]
     Indication: SJOGREN'S SYNDROME
     Route: 048
     Dates: start: 20010126, end: 20031101
  2. SOTALOL HYDROCHLORIDE [Concomitant]
     Indication: CORONARY ARTERY DISEASE
     Route: 048
  3. ASPIRIN AND MAGNESIUM OXIDE [Concomitant]
     Indication: CORONARY ARTERY DISEASE
     Route: 048

REACTIONS (1)
  - CORONARY ARTERY OCCLUSION [None]
